FAERS Safety Report 7191193-4 (Version None)
Quarter: 2010Q4

REPORT INFORMATION
  Report Type: 
  Country: None (occurrence: None)
  Receive Date: 20101221
  Receipt Date: 20101221
  Transmission Date: 20110411
  Serious: Yes (Other)
  Sender: FDA-Public Use
  Company Number: None

PATIENT
  Age: 81 Year
  Sex: Female
  Weight: 63.5036 kg

DRUGS (1)
  1. NITROFUR 100 MG [Suspect]
     Indication: URINARY TRACT INFECTION
     Dosage: 2 PR DAY 10 DAYS
     Dates: start: 20101127, end: 20101203

REACTIONS (11)
  - ASTHENIA [None]
  - CHILLS [None]
  - CONCUSSION [None]
  - DECREASED APPETITE [None]
  - DIARRHOEA [None]
  - HEAD INJURY [None]
  - HEADACHE [None]
  - LOSS OF CONSCIOUSNESS [None]
  - PYREXIA [None]
  - RASH [None]
  - VERTIGO [None]
